FAERS Safety Report 4596605-8 (Version None)
Quarter: 2005Q1

REPORT INFORMATION
  Report Type: 
  Country: None (occurrence: None)
  Receive Date: 20050228
  Receipt Date: 20050214
  Transmission Date: 20050727
  Serious: Yes (Death, Hospitalization, Other)
  Sender: FDA-Public Use
  Company Number: 2005030325

PATIENT
  Age: 55 Year
  Sex: Male

DRUGS (9)
  1. VFEND [Suspect]
     Indication: ASPERGILLOSIS
     Dosage: ORAL
     Route: 048
     Dates: start: 20041230, end: 20050104
  2. AMOXICILLIN [Suspect]
     Indication: ENDOCARDITIS BACTERIAL
     Dosage: 12 GRAM (2 GRAM, 6 IN 1 D), ORAL
     Route: 048
     Dates: start: 20041222, end: 20050114
  3. AMPHOTERICIN B              (AMPHOTERCIN B) [Suspect]
     Indication: ASPERGILLOSIS
     Dosage: INTRAVENOUS
     Route: 042
     Dates: start: 20050104, end: 20050114
  4. GENTAMICIN [Suspect]
     Indication: ENDOCARDITIS BACTERIAL
     Dosage: INTRAVENOUS
     Route: 042
     Dates: start: 20041222, end: 20050114
  5. GANCICLOVIR SODIUM (GANCILCOVIR SODIUM) [Concomitant]
     Indication: CYTOMEGALOVIRUS INFECTION
     Dosage: 160 MG (160 MG, 1 IN 1 D), ORAL
     Route: 048
     Dates: start: 20041214, end: 20050114
  6. FOSCARNET SODIUM [Suspect]
     Indication: INFECTION
     Dosage: INTRAVENOUS
     Route: 042
     Dates: start: 20041230, end: 20050114
  7. BACTRIM [Concomitant]
  8. PANTOPRAZOLE        (PANTOPRAZOLE) [Concomitant]
  9. PREDNISONE [Concomitant]

REACTIONS (8)
  - APLASIA [None]
  - ASPERGILLOSIS [None]
  - BRONCHOPULMONARY ASPERGILLOSIS [None]
  - CHOLESTASIS [None]
  - ENDOCARDITIS BACTERIAL [None]
  - HISTIOCYTOSIS HAEMATOPHAGIC [None]
  - MULTI-ORGAN FAILURE [None]
  - TOXIC EPIDERMAL NECROLYSIS [None]
